FAERS Safety Report 8612413-2 (Version None)
Quarter: 2012Q3

REPORT INFORMATION
  Report Type: 
  Country: None (occurrence: None)
  Receive Date: 20120822
  Receipt Date: 20120809
  Transmission Date: 20120928
  Serious: Yes (Hospitalization)
  Sender: FDA-Public Use
  Company Number: DE-FRI-1000037890

PATIENT
  Age: 36 Year
  Sex: Female

DRUGS (5)
  1. LEVOTHYROXINE SODIUM [Concomitant]
     Indication: HYPOTHYROIDISM
     Dosage: 50 MCG
     Route: 048
  2. RAMIPRIL [Suspect]
     Indication: HYPERTENSION
     Dosage: 2.5 MG
     Route: 048
  3. FOLIC ACID [Concomitant]
     Indication: PROPHYLAXIS OF NEURAL TUBE DEFECT
     Dosage: 0.4 MG
     Route: 048
  4. RAMIPRIL [Suspect]
     Dosage: 5 MG
     Route: 048
  5. NEBIVOLOL [Suspect]
     Indication: HYPERTENSION
     Dosage: 5 MG
     Route: 048

REACTIONS (2)
  - OLIGOHYDRAMNIOS [None]
  - MATERNAL EXPOSURE DURING PREGNANCY [None]
